FAERS Safety Report 16149921 (Version 2)
Quarter: 2019Q2

REPORT INFORMATION
  Report Type: Report from Study
  Country: FR (occurrence: FR)
  Receive Date: 20190403
  Receipt Date: 20190418
  Transmission Date: 20190711
  Serious: Yes (Hospitalization)
  Sender: FDA-Public Use
  Company Number: FR-ROCHE-2291393

PATIENT
  Age: 76 Year
  Sex: Female

DRUGS (25)
  1. GEMCITABINE [Suspect]
     Active Substance: GEMCITABINE\GEMCITABINE HYDROCHLORIDE
     Dosage: MOST RECENT DOSE PRIOR TO SAE ONSET ON 01/MAR/2019
     Route: 042
     Dates: start: 20190322
  2. DAFALGAN [Concomitant]
     Active Substance: ACETAMINOPHEN
  3. MACROGOL [Concomitant]
     Active Substance: POLYETHYLENE GLYCOLS
  4. PDR (UNK INGREDIENTS) [Concomitant]
  5. ATEZOLIZUMAB. [Suspect]
     Active Substance: ATEZOLIZUMAB
     Indication: RECURRENT CANCER
     Route: 042
     Dates: start: 20190111
  6. CARBOPLATIN. [Suspect]
     Active Substance: CARBOPLATIN
     Indication: RECURRENT CANCER
     Dosage: AUC 4, D1?MOST RECENT DOSE OF 317 MG PRIOR TO SAE ONSET ON 22/FEB/2019
     Route: 042
     Dates: start: 20190111, end: 20190315
  7. SKENAN [Concomitant]
     Active Substance: MORPHINE SULFATE
  8. BIMATOPROST. [Concomitant]
     Active Substance: BIMATOPROST
  9. GEMCITABINE [Suspect]
     Active Substance: GEMCITABINE\GEMCITABINE HYDROCHLORIDE
     Indication: RECURRENT CANCER
     Dosage: MOST RECENT DOSE OF 317 MG PRIOR TO SAE ONSET ON 01/MAR/2019
     Route: 042
     Dates: start: 20190111, end: 20190315
  10. TRAMADOL. [Concomitant]
     Active Substance: TRAMADOL
  11. KENZEN [Concomitant]
     Active Substance: CANDESARTAN
  12. PARACETAMOL [Concomitant]
     Active Substance: ACETAMINOPHEN
  13. ALPRAZOLAM. [Concomitant]
     Active Substance: ALPRAZOLAM
  14. AUGMENTIN [Concomitant]
     Active Substance: AMOXICILLIN\CLAVULANATE POTASSIUM
  15. BEVACIZUMAB. [Suspect]
     Active Substance: BEVACIZUMAB
     Indication: RECURRENT CANCER
     Dosage: MOST RECENT DOSE PRIOR TO SAE ONSET ON 22/FEB/2019
     Route: 042
     Dates: start: 20190322
  16. ACUPAN [Concomitant]
     Active Substance: NEFOPAM HYDROCHLORIDE
  17. SEVEDOL [Concomitant]
     Active Substance: ACETAMINOPHEN\ASPIRIN\CAFFEINE
  18. LATANOPROST. [Concomitant]
     Active Substance: LATANOPROST
  19. ACETYLSALICYLIC ACID [Concomitant]
     Active Substance: ASPIRIN
  20. BEVACIZUMAB. [Suspect]
     Active Substance: BEVACIZUMAB
     Dosage: MOST RECENT DOSE PRIOR TO SAE ONSET ON 22/FEB/2019
     Route: 042
     Dates: start: 20190111, end: 20190315
  21. KARDEGIC [Concomitant]
     Active Substance: ASPIRIN DL-LYSINE
  22. CANDESARTAN. [Concomitant]
     Active Substance: CANDESARTAN
  23. MORPHINE [Concomitant]
     Active Substance: MORPHINE
  24. PREDNISONE. [Concomitant]
     Active Substance: PREDNISONE
  25. CARBOPLATIN. [Suspect]
     Active Substance: CARBOPLATIN
     Dosage: AUC 4, D1?MOST RECENT DOSE PRIOR TO SAE ONSET ON 22/FEB/2019
     Route: 042
     Dates: start: 20190322

REACTIONS (1)
  - Lower respiratory tract infection [Recovered/Resolved]

NARRATIVE: CASE EVENT DATE: 20190308
